FAERS Safety Report 13890355 (Version 2)
Quarter: 2017Q4

REPORT INFORMATION
  Report Type: Spontaneous
  Country: US (occurrence: US)
  Receive Date: 20170822
  Receipt Date: 20171016
  Transmission Date: 20180320
  Serious: No
  Sender: FDA-Public Use
  Company Number: US-ASTRAZENECA-2017SE84330

PATIENT
  Age: 732 Month
  Sex: Female
  Weight: 78.9 kg

DRUGS (11)
  1. RHINOCORT ALLERGY [Suspect]
     Active Substance: BUDESONIDE
     Indication: HYPERSENSITIVITY
     Dosage: 1 SPRAY IN EACH NOSTRIL ONCE DAILY
     Route: 045
     Dates: end: 20170517
  2. RHINOCORT ALLERGY [Suspect]
     Active Substance: BUDESONIDE
     Indication: SINUS CONGESTION
     Dosage: 1-2 SPRAYS EACH NOSTRIL ONCE A DAY
     Route: 045
     Dates: start: 20170517, end: 20170519
  3. RHINOCORT ALLERGY [Suspect]
     Active Substance: BUDESONIDE
     Indication: HYPERSENSITIVITY
     Dosage: 1-2 SPRAYS EACH NOSTRIL ONCE A DAY
     Route: 045
     Dates: start: 20170517, end: 20170519
  4. RHINOCORT ALLERGY [Suspect]
     Active Substance: BUDESONIDE
     Indication: RHINORRHOEA
     Dosage: 1-2 SPRAYS EACH NOSTRIL ONCE A DAY
     Route: 045
     Dates: start: 20170517, end: 20170519
  5. PROTONIX [Concomitant]
     Active Substance: PANTOPRAZOLE SODIUM
     Indication: GASTROOESOPHAGEAL REFLUX DISEASE
  6. TYLENOL [Concomitant]
     Active Substance: ACETAMINOPHEN
     Indication: VIRAL UPPER RESPIRATORY TRACT INFECTION
  7. RHINOCORT ALLERGY [Suspect]
     Active Substance: BUDESONIDE
     Indication: SINUS CONGESTION
     Dosage: 1 SPRAY IN EACH NOSTRIL ONCE DAILY
     Route: 045
     Dates: end: 20170517
  8. RHINOCORT ALLERGY [Suspect]
     Active Substance: BUDESONIDE
     Indication: RHINORRHOEA
     Dosage: 1 SPRAY IN EACH NOSTRIL ONCE DAILY
     Route: 045
     Dates: end: 20170517
  9. HYDROCHLOROTHIAZIDE. [Concomitant]
     Active Substance: HYDROCHLOROTHIAZIDE
     Indication: HYPERTENSION
  10. SUDAFED [Concomitant]
     Active Substance: PSEUDOEPHEDRINE HYDROCHLORIDE
     Indication: VIRAL UPPER RESPIRATORY TRACT INFECTION
  11. ZANTAC [Concomitant]
     Active Substance: RANITIDINE HYDROCHLORIDE
     Indication: GASTROOESOPHAGEAL REFLUX DISEASE
     Dosage: 1 / DAY

REACTIONS (3)
  - Anosmia [Not Recovered/Not Resolved]
  - Sinusitis [Not Recovered/Not Resolved]
  - Ageusia [Unknown]

NARRATIVE: CASE EVENT DATE: 201705
